APPROVED DRUG PRODUCT: URSODIOL
Active Ingredient: URSODIOL
Strength: 300MG
Dosage Form/Route: CAPSULE;ORAL
Application: A077895 | Product #001
Applicant: IMPAX LABORATORIES INC
Approved: Jul 27, 2006 | RLD: No | RS: No | Type: DISCN